FAERS Safety Report 13505843 (Version 1)
Quarter: 2017Q2

REPORT INFORMATION
  Report Type: Spontaneous
  Country: US (occurrence: US)
  Receive Date: 20170502
  Receipt Date: 20170502
  Transmission Date: 20170830
  Serious: No
  Sender: FDA-Public Use
  Company Number: US-ROCHE-1356855

PATIENT
  Age: 52 Year
  Sex: Female

DRUGS (1)
  1. AVASTIN [Suspect]
     Active Substance: BEVACIZUMAB
     Indication: BLADDER CANCER
     Route: 065
     Dates: end: 2013

REACTIONS (3)
  - Platelet count abnormal [Unknown]
  - Platelet count decreased [Unknown]
  - Bladder cancer [Unknown]
